FAERS Safety Report 8619329-6 (Version None)
Quarter: 2012Q3

REPORT INFORMATION
  Report Type: 
  Country: None (occurrence: None)
  Receive Date: 20120824
  Receipt Date: 20120820
  Transmission Date: 20120928
  Serious: Yes (Other)
  Sender: FDA-Public Use
  Company Number: BR-PFIZER INC-2012196959

PATIENT
  Age: 66 Year
  Sex: Male

DRUGS (5)
  1. TYLENOL [Concomitant]
     Indication: PAIN
  2. VITAMIN E [Concomitant]
     Indication: INFLUENZA
  3. SUTENT [Suspect]
     Indication: RENAL CANCER
     Dosage: 50 MG, 1X/DAY, CYCLE 4 PER 2
     Route: 048
     Dates: start: 20120528
  4. METOCLOPRAMIDE HYDROCHLORIDE [Concomitant]
     Indication: NAUSEA
     Dosage: UNK
  5. PARACETAMOL [Concomitant]
     Indication: PAIN
     Dosage: UNK

REACTIONS (7)
  - YELLOW SKIN [None]
  - SKIN EXFOLIATION [None]
  - PALMAR-PLANTAR ERYTHRODYSAESTHESIA SYNDROME [None]
  - ARTHRALGIA [None]
  - DYSGEUSIA [None]
  - VISUAL IMPAIRMENT [None]
  - INTESTINAL FISTULA [None]
